FAERS Safety Report 20917953 (Version 1)
Quarter: 2022Q2

REPORT INFORMATION
  Report Type: Spontaneous
  Country: US (occurrence: None)
  Receive Date: 20220606
  Receipt Date: 20220606
  Transmission Date: 20220720
  Serious: Yes (Other)
  Sender: FDA-Public Use
  Company Number: US-002147023-NVSC2022US078482

PATIENT
  Age: 74 Year
  Sex: Female

DRUGS (10)
  1. FLUOXETINE [Suspect]
     Active Substance: FLUOXETINE HYDROCHLORIDE
  2. PROMETHAZINE [Suspect]
     Active Substance: PROMETHAZINE HYDROCHLORIDE
  3. DULOXETINE [Suspect]
     Active Substance: DULOXETINE
  4. DOMPERIDONE [Suspect]
     Active Substance: DOMPERIDONE
  5. NORTRIPTYLINE [Suspect]
     Active Substance: NORTRIPTYLINE
  6. METOCLOPRAMIDE [Suspect]
     Active Substance: METOCLOPRAMIDE
  7. ARIPIPRAZOLE [Suspect]
     Active Substance: ARIPIPRAZOLE
  8. VALSARTAN [Suspect]
     Active Substance: VALSARTAN
  9. ROPINIROLE [Suspect]
     Active Substance: ROPINIROLE
  10. OMEPRAZOLE [Suspect]
     Active Substance: OMEPRAZOLE

REACTIONS (2)
  - Tardive dyskinesia [Recovering/Resolving]
  - Dyskinesia [Recovering/Resolving]
